FAERS Safety Report 6942839-4 (Version None)
Quarter: 2010Q3

REPORT INFORMATION
  Report Type: 
  Country: None (occurrence: None)
  Receive Date: 20100826
  Receipt Date: 20100816
  Transmission Date: 20110219
  Serious: Yes (Other)
  Sender: FDA-Public Use
  Company Number: BR-ROCHE-721391

PATIENT
  Sex: Female
  Weight: 70 kg

DRUGS (2)
  1. XENICAL [Suspect]
     Indication: WEIGHT CONTROL
     Route: 048
     Dates: start: 20050101
  2. XENICAL [Suspect]
     Dosage: FREQUENCY REPORTED AS ^THIRD A DAY^
     Route: 048
     Dates: start: 20100501

REACTIONS (4)
  - HYPERTHYROIDISM [None]
  - ILL-DEFINED DISORDER [None]
  - STEATORRHOEA [None]
  - URINE ANALYSIS ABNORMAL [None]
